FAERS Safety Report 6329349-2 (Version None)
Quarter: 2009Q3

REPORT INFORMATION
  Report Type: 
  Country: None (occurrence: None)
  Receive Date: 20090824
  Receipt Date: 20090824
  Transmission Date: 20100115
  Serious: Yes (Hospitalization)
  Sender: FDA-Public Use
  Company Number: None

PATIENT
  Sex: Male
  Weight: 113.3993 kg

DRUGS (1)
  1. LISINOPRIL [Suspect]
     Indication: BLOOD PRESSURE
     Dosage: 1 DAY PO
     Route: 048
     Dates: start: 19940808, end: 20090808

REACTIONS (2)
  - LIP SWELLING [None]
  - SWELLING FACE [None]
